FAERS Safety Report 24897480 (Version 2)
Quarter: 2025Q1

REPORT INFORMATION
  Report Type: Report from Study
  Country: IN (occurrence: IN)
  Receive Date: 20250129
  Receipt Date: 20250305
  Transmission Date: 20250408
  Serious: Yes (Death, Hospitalization)
  Sender: ROCHE
  Company Number: IN-ROCHE-3564639

PATIENT
  Age: 78 Year
  Sex: Male

DRUGS (2)
  1. TECENTRIQ [Suspect]
     Active Substance: ATEZOLIZUMAB
     Indication: Lung adenocarcinoma
     Dosage: LATEST SUSPECT DRUG ADMINISTRATION: 04/JUL/2024
     Route: 042
     Dates: start: 20240415
  2. TECENTRIQ [Suspect]
     Active Substance: ATEZOLIZUMAB
     Route: 042

REACTIONS (7)
  - Blood creatinine increased [Unknown]
  - Toxicity to various agents [Unknown]
  - Hypertension [Recovered/Resolved]
  - Urinary tract infection [Recovered/Resolved]
  - Blood creatinine decreased [Unknown]
  - Myocardial infarction [Unknown]
  - Death [Fatal]
